FAERS Safety Report 17144262 (Version 2)
Quarter: 2020Q2

REPORT INFORMATION
  Report Type: Spontaneous
  Country: FR (occurrence: FR)
  Receive Date: 20191212
  Receipt Date: 20200511
  Transmission Date: 20200713
  Serious: Yes (Other)
  Sender: FDA-Public Use
  Company Number: FR-MYLANLABS-2019M1120592

PATIENT
  Age: 25 Year
  Sex: Female
  Weight: 57 kg

DRUGS (7)
  1. TRAMADOL. [Suspect]
     Active Substance: TRAMADOL
     Indication: INTERVERTEBRAL DISC PROTRUSION
     Dosage: 100 MILLIGRAM, QD
     Route: 048
     Dates: start: 2019
  2. VITAMINE B12 [Concomitant]
     Active Substance: CYANOCOBALAMIN
     Dosage: UNK
  3. KESTIN [Suspect]
     Active Substance: EBASTINE
     Indication: HYPERSENSITIVITY
     Dosage: 1 DOSAGE FORM, QD
     Route: 048
     Dates: start: 20190528
  4. MIZOLLEN [Suspect]
     Active Substance: MIZOLASTINE
     Indication: HYPERSENSITIVITY
     Dosage: 1 DOSAGE FORM, QD
     Route: 048
     Dates: start: 20190528
  5. JAYDESS [Concomitant]
     Active Substance: LEVONORGESTREL
  6. JANUVIA [Suspect]
     Active Substance: SITAGLIPTIN PHOSPHATE
     Indication: TYPE 2 DIABETES MELLITUS
     Dosage: 1 DOSAGE FORM, QD
     Dates: end: 20190718
  7. GLUCOPHAGE [Concomitant]
     Active Substance: METFORMIN HYDROCHLORIDE
     Dosage: UNK

REACTIONS (1)
  - Hypoglycaemia [Recovered/Resolved]

NARRATIVE: CASE EVENT DATE: 201906
